FAERS Safety Report 8072395-1 (Version None)
Quarter: 2011Q4

REPORT INFORMATION
  Report Type: 
  Country: None (occurrence: None)
  Receive Date: 20111222
  Receipt Date: 20111024
  Transmission Date: 20120403
  Serious: Yes (Hospitalization)
  Sender: FDA-Public Use
  Company Number: UTC-011622

PATIENT
  Age: 18 Year
  Sex: Male
  Weight: 36.36 kg

DRUGS (5)
  1. ADCIRCA [Concomitant]
  2. LETAIRIS [Concomitant]
  3. REVATIO [Concomitant]
  4. DIURETICS (DIURETICS) [Concomitant]
  5. TYVASO [Suspect]
     Indication: PULMONARY HYPERTENSION
     Dosage: 288 MCG (72 MCG, 4 IN 1 D), INHALATION
     Route: 055
     Dates: start: 20101029

REACTIONS (1)
  - DEVICE RELATED INFECTION [None]
